FAERS Safety Report 14636578 (Version 1)
Quarter: 2018Q1

REPORT INFORMATION
  Report Type: Spontaneous
  Country: US (occurrence: US)
  Receive Date: 20180314
  Receipt Date: 20180314
  Transmission Date: 20180509
  Serious: Yes (Life-Threatening, Hospitalization, Other)
  Sender: FDA-Public Use
  Company Number: US-ASTRAZENECA-2018SE29352

PATIENT
  Sex: Male
  Weight: 88.2 kg

DRUGS (12)
  1. LISINOPRIL. [Suspect]
     Active Substance: LISINOPRIL
     Route: 048
     Dates: start: 20140828, end: 20171114
  2. FARXIGA [Suspect]
     Active Substance: DAPAGLIFLOZIN PROPANEDIOL
     Indication: TYPE 2 DIABETES MELLITUS
     Dosage: DAILY
     Route: 048
     Dates: start: 20171114, end: 20171114
  3. TRULICITY [Concomitant]
     Active Substance: DULAGLUTIDE
  4. METFORMIN [Concomitant]
     Active Substance: METFORMIN HYDROCHLORIDE
  5. IMITREX [Concomitant]
     Active Substance: SUMATRIPTAN SUCCINATE
  6. VITAMIN B12 [Concomitant]
     Active Substance: CYANOCOBALAMIN
  7. ASPIRIN. [Concomitant]
     Active Substance: ASPIRIN
  8. ANDROGEL [Concomitant]
     Active Substance: TESTOSTERONE
  9. NEXIUM [Concomitant]
     Active Substance: ESOMEPRAZOLE MAGNESIUM
  10. DIPHENHYDRAMINE. [Concomitant]
     Active Substance: DIPHENHYDRAMINE
  11. GLYBURIDE. [Concomitant]
     Active Substance: GLYBURIDE
  12. LYRICA [Concomitant]
     Active Substance: PREGABALIN

REACTIONS (14)
  - Dyspnoea [Unknown]
  - Dysphonia [Unknown]
  - Urticaria [Unknown]
  - Hypoaesthesia [Unknown]
  - Dysphagia [Unknown]
  - Oropharyngeal pain [Unknown]
  - Throat irritation [Unknown]
  - Paraesthesia [Unknown]
  - Swollen tongue [Unknown]
  - Respiratory distress [Unknown]
  - Tinnitus [Unknown]
  - Ear pain [Unknown]
  - Pain in jaw [Unknown]
  - Balance disorder [Unknown]
